FAERS Safety Report 7383018 (Version 2)
Quarter: 2013Q3

REPORT INFORMATION
  Report Type: Spontaneous
  Country: US (occurrence: US)
  Receive Date: 20100511
  Receipt Date: 20130729
  Transmission Date: 20140515
  Serious: Yes (Other)
  Sender: FDA-Public Use
  Company Number: US-RANBAXY-2008US-33500

PATIENT
  Age: 71 Year
  Sex: Male

DRUGS (3)
  1. METOCLOPRAMIDE [Suspect]
     Indication: GASTROINTESTINAL DISORDER
     Dosage: 10 MG, TID
     Route: 065
  2. TRIHEXYPHENIDYL [Concomitant]
     Indication: PARKINSON^S DISEASE
     Dosage: UNK
     Route: 065
  3. LEVODOPA/CARBIDOPA [Concomitant]
     Indication: PARKINSON^S DISEASE
     Dosage: UNK
     Route: 065

REACTIONS (2)
  - Encephalopathy [Recovered/Resolved]
  - Parkinson^s disease [Not Recovered/Not Resolved]
